FAERS Safety Report 5912965-7 (Version None)
Quarter: 2008Q4

REPORT INFORMATION
  Report Type: 
  Country: None (occurrence: None)
  Receive Date: 20081008
  Receipt Date: 20080926
  Transmission Date: 20090506
  Serious: Yes (Hospitalization, Other)
  Sender: FDA-Public Use
  Company Number: JP-PFIZER INC-2008026925

PATIENT
  Sex: Male
  Weight: 44 kg

DRUGS (5)
  1. VFEND [Suspect]
     Indication: MENINGITIS CRYPTOCOCCAL
     Route: 042
     Dates: start: 20080229, end: 20080229
  2. VFEND [Suspect]
     Route: 042
     Dates: start: 20080301, end: 20080317
  3. VFEND [Suspect]
     Indication: MENINGITIS CRYPTOCOCCAL
     Route: 048
     Dates: start: 20080318, end: 20080321
  4. AMBISOME [Suspect]
     Indication: MENINGITIS CRYPTOCOCCAL
     Dosage: DAILY DOSE:150MG
     Route: 042
     Dates: start: 20080215, end: 20080228
  5. AMBISOME [Suspect]
     Dates: start: 20080324

REACTIONS (1)
  - INTERSTITIAL LUNG DISEASE [None]
